FAERS Safety Report 24261529 (Version 3)
Quarter: 2025Q1

REPORT INFORMATION
  Report Type: Spontaneous
  Country: FR (occurrence: FR)
  Receive Date: 20240829
  Receipt Date: 20250203
  Transmission Date: 20250408
  Serious: No
  Sender: TOLMAR
  Company Number: FR-TOLMAR, INC.-24FR051715

PATIENT
  Age: 90 Year
  Sex: Male

DRUGS (1)
  1. ELIGARD [Suspect]
     Active Substance: LEUPROLIDE ACETATE
     Indication: Prostate cancer
     Dates: start: 20240805

REACTIONS (3)
  - Intercepted product preparation error [Unknown]
  - Device occlusion [Unknown]
  - Syringe issue [Unknown]

NARRATIVE: CASE EVENT DATE: 20240805
